FAERS Safety Report 8564196-2 (Version None)
Quarter: 2012Q3

REPORT INFORMATION
  Report Type: 
  Country: None (occurrence: None)
  Receive Date: 20120803
  Receipt Date: 20120727
  Transmission Date: 20120928
  Serious: Yes (Hospitalization, Other)
  Sender: FDA-Public Use
  Company Number: US-ABBOTT-12P-163-0961717-00

PATIENT
  Age: 21 Year
  Sex: Male

DRUGS (2)
  1. FLAGYL [Concomitant]
     Indication: PRODUCT USED FOR UNKNOWN INDICATION
  2. HUMIRA [Suspect]
     Indication: CROHN'S DISEASE
     Dosage: (160 MG, LOADING DOSE)
     Dates: start: 20120531, end: 20120531

REACTIONS (6)
  - ABSCESS INTESTINAL [None]
  - SPLENOMEGALY [None]
  - ILEOSTOMY [None]
  - SMALL INTESTINAL PERFORATION [None]
  - LARGE INTESTINE PERFORATION [None]
  - PYREXIA [None]
